FAERS Safety Report 4594785-1 (Version None)
Quarter: 2005Q1

REPORT INFORMATION
  Report Type: 
  Country: None (occurrence: None)
  Receive Date: 20050223
  Receipt Date: 20050208
  Transmission Date: 20050727
  Serious: No
  Sender: FDA-Public Use
  Company Number: 10223

PATIENT
  Age: 35 Year
  Sex: Female

DRUGS (5)
  1. METHOTREXATE [Suspect]
     Indication: RHEUMATOID ARTHRITIS
     Dosage: 15 MG WEEKLY/10 MG WEEKLY/15 MG WEEKLY
     Dates: start: 20030728, end: 20031104
  2. METHOTREXATE [Suspect]
     Indication: RHEUMATOID ARTHRITIS
     Dosage: 15 MG WEEKLY/10 MG WEEKLY/15 MG WEEKLY
     Dates: start: 20031105, end: 20040122
  3. METHOTREXATE [Suspect]
     Indication: RHEUMATOID ARTHRITIS
     Dosage: 15 MG WEEKLY/10 MG WEEKLY/15 MG WEEKLY
     Dates: start: 20040123
  4. SULFASALAZINE [Suspect]
  5. LEFLUNOMIDE [Concomitant]

REACTIONS (1)
  - MUCOUS MEMBRANE DISORDER [None]
